FAERS Safety Report 10730649 (Version 1)
Quarter: 2015Q1

REPORT INFORMATION
  Report Type: Spontaneous
  Country: US (occurrence: US)
  Receive Date: 20150122
  Receipt Date: 20150122
  Transmission Date: 20150721
  Serious: Yes (Other)
  Sender: FDA-Public Use
  Company Number: US-UNITED THERAPEUTICS-UNT-2015-000534

PATIENT
  Age: 61 Year
  Sex: Female
  Weight: 64.39 kg

DRUGS (3)
  1. REMODULIN [Suspect]
     Active Substance: TREPROSTINIL
     Indication: PULMONARY HYPERTENSION
     Dosage: 0.089 ?G/KG, CONTINUING
     Route: 058
     Dates: start: 20050201
  2. COUMADIN [Concomitant]
     Active Substance: WARFARIN SODIUM
     Indication: PRODUCT USED FOR UNKNOWN INDICATION
  3. ADCIRCA [Concomitant]
     Active Substance: TADALAFIL
     Indication: PRODUCT USED FOR UNKNOWN INDICATION

REACTIONS (5)
  - Drug dose omission [Unknown]
  - Flushing [Unknown]
  - Nausea [Unknown]
  - Device dislocation [Unknown]
  - Psychogenic seizure [Unknown]

NARRATIVE: CASE EVENT DATE: 201501
